FAERS Safety Report 23133210 (Version 6)
Quarter: 2024Q1

REPORT INFORMATION
  Report Type: Report from Study
  Country: US (occurrence: US)
  Receive Date: 20231101
  Receipt Date: 20240112
  Transmission Date: 20240410
  Serious: Yes (Other)
  Sender: FDA-Public Use
  Company Number: US-002147023-NVSC2023US230432

PATIENT
  Age: 61 Year
  Sex: Female

DRUGS (3)
  1. ENTRESTO [Suspect]
     Active Substance: SACUBITRIL\VALSARTAN
     Indication: Product used for unknown indication
     Dosage: UNK
     Route: 065
     Dates: start: 202309
  2. LOSARTAN [Suspect]
     Active Substance: LOSARTAN
     Indication: Product used for unknown indication
     Dosage: UNK
     Route: 065
  3. AMLODIPINE [Suspect]
     Active Substance: AMLODIPINE BESYLATE
     Indication: Product used for unknown indication
     Dosage: UNK
     Route: 065

REACTIONS (15)
  - Myocardial infarction [Unknown]
  - Breast cancer [Unknown]
  - Dyspnoea [Recovering/Resolving]
  - Dysphonia [Unknown]
  - Aphonia [Unknown]
  - Wheezing [Unknown]
  - Heart rate decreased [Unknown]
  - Ventricular extrasystoles [Unknown]
  - Weight decreased [Unknown]
  - Blood glucose decreased [Unknown]
  - Fatigue [Unknown]
  - Dizziness [Unknown]
  - Cough [Recovered/Resolved]
  - Productive cough [Unknown]
  - Contraindicated product administered [Unknown]

NARRATIVE: CASE EVENT DATE: 20230921
